FAERS Safety Report 5571455-4 (Version None)
Quarter: 2007Q4

REPORT INFORMATION
  Report Type: 
  Country: None (occurrence: None)
  Receive Date: 20071219
  Receipt Date: 20071210
  Transmission Date: 20080405
  Serious: Yes (Hospitalization)
  Sender: FDA-Public Use
  Company Number: 2007SP004077

PATIENT
  Age: 4 Month
  Sex: Female

DRUGS (2)
  1. XOPENEX [Suspect]
     Indication: COUGH
     Dosage: INHALATION
     Route: 055
     Dates: start: 20070101
  2. DIURIL [Suspect]
     Dates: start: 20070101

REACTIONS (5)
  - CARDIAC FAILURE [None]
  - DYSPNOEA [None]
  - GASTROOESOPHAGEAL REFLUX DISEASE [None]
  - NO THERAPEUTIC RESPONSE [None]
  - TACHYCARDIA [None]
